FAERS Safety Report 13133189 (Version 2)
Quarter: 2017Q1

REPORT INFORMATION
  Report Type: Spontaneous
  Country: JP (occurrence: JP)
  Receive Date: 20170120
  Receipt Date: 20170130
  Transmission Date: 20170428
  Serious: Yes (Hospitalization)
  Sender: FDA-Public Use
  Company Number: PHJP2016JP038309

PATIENT
  Age: 90 Year
  Sex: Female

DRUGS (1)
  1. COSENTYX [Suspect]
     Active Substance: SECUKINUMAB
     Indication: PUSTULAR PSORIASIS
     Dosage: 300 MG, PER ADMINISTRATION
     Route: 058
     Dates: start: 20160106

REACTIONS (6)
  - Abdominal discomfort [Unknown]
  - Dehydration [Unknown]
  - Diarrhoea [Unknown]
  - Pyrexia [Unknown]
  - C-reactive protein increased [Unknown]
  - Colitis [Unknown]

NARRATIVE: CASE EVENT DATE: 20161109
